FAERS Safety Report 7083471-4 (Version None)
Quarter: 2010Q4

REPORT INFORMATION
  Report Type: 
  Country: None (occurrence: None)
  Receive Date: 20101104
  Receipt Date: 20101027
  Transmission Date: 20110411
  Serious: Yes (Hospitalization)
  Sender: FDA-Public Use
  Company Number: B0682823A

PATIENT
  Sex: Female

DRUGS (3)
  1. SEREUPIN [Suspect]
     Indication: ANXIETY
     Dosage: 20MG PER DAY
     Route: 048
     Dates: start: 20100101, end: 20100617
  2. PRAZENE [Suspect]
     Indication: ANXIETY
     Dosage: 20MG PER DAY
     Route: 048
     Dates: start: 20100101, end: 20100617
  3. TRANSTEC [Suspect]
     Indication: PAIN
     Dosage: 20MG PER DAY
     Route: 062
     Dates: start: 20100614, end: 20100617

REACTIONS (1)
  - ALTERED STATE OF CONSCIOUSNESS [None]
